FAERS Safety Report 5906190-3 (Version None)
Quarter: 2008Q4

REPORT INFORMATION
  Report Type: 
  Country: None (occurrence: None)
  Receive Date: 20081002
  Receipt Date: 20080923
  Transmission Date: 20090506
  Serious: Yes (Other)
  Sender: FDA-Public Use
  Company Number: US-PURDUE-DEU_2008_0004685

PATIENT
  Age: 66 Year
  Sex: Female

DRUGS (2)
  1. HYDROMORPHONE HCL INJECTABLE [Suspect]
     Indication: ANALGESIC THERAPY
     Route: 042
  2. BUPIVACAINE [Suspect]
     Indication: ANALGESIC THERAPY
     Route: 042

REACTIONS (2)
  - ISCHAEMIC STROKE [None]
  - REVERSIBLE ISCHAEMIC NEUROLOGICAL DEFICIT [None]
